FAERS Safety Report 5416608-0 (Version None)
Quarter: 2007Q3

REPORT INFORMATION
  Report Type: 
  Country: None (occurrence: None)
  Receive Date: 20070816
  Receipt Date: 20070810
  Transmission Date: 20080115
  Serious: Yes (Disabling)
  Sender: FDA-Public Use
  Company Number: BE-AVENTIS-200622543GDDC

PATIENT
  Age: 75 Year
  Sex: Female
  Weight: 67 kg

DRUGS (8)
  1. ARAVA [Suspect]
     Route: 048
     Dates: start: 20050620
  2. ARAVA [Suspect]
     Route: 048
     Dates: end: 20060419
  3. ARAVA [Suspect]
     Dosage: DOSE: UNK
     Dates: start: 20070501
  4. EMCORETIC [Concomitant]
     Dosage: DOSE: 0.5 TAB OF 10/25 MG
     Dates: start: 20050729, end: 20060220
  5. PREDNISOLONE [Concomitant]
     Route: 048
     Dates: start: 20050623, end: 20051003
  6. PREDNISOLONE [Concomitant]
     Route: 048
     Dates: start: 20051004
  7. ZESTORETIC [Concomitant]
     Dosage: DOSE: 1 TABLET OF 20/12.5MG
     Dates: start: 20060301
  8. NOBITEN                            /01339101/ [Concomitant]
     Indication: HYPERTENSION
     Dosage: DOSE: 1 TABLET
     Route: 048
     Dates: start: 20050101

REACTIONS (4)
  - CHEST PAIN [None]
  - CONDITION AGGRAVATED [None]
  - EXTRASYSTOLES [None]
  - HYPERTENSION [None]
